FAERS Safety Report 5036906-2 (Version None)
Quarter: 2006Q2

REPORT INFORMATION
  Report Type: 
  Country: None (occurrence: None)
  Receive Date: 20060622
  Receipt Date: 20060605
  Transmission Date: 20061013
  Serious: No
  Sender: FDA-Public Use
  Company Number: US200606002253

PATIENT
  Sex: Female

DRUGS (1)
  1. CYMBALTA [Suspect]
     Dosage: MG

REACTIONS (4)
  - HEPATIC ENZYME INCREASED [None]
  - LIVER DISORDER [None]
  - NAUSEA [None]
  - SWELLING [None]
